FAERS Safety Report 25503497 (Version 3)
Quarter: 2025Q3

REPORT INFORMATION
  Report Type: Spontaneous
  Country: US (occurrence: US)
  Receive Date: 20250702
  Receipt Date: 20250729
  Transmission Date: 20251021
  Serious: No
  Sender: ELI LILLY AND COMPANY
  Company Number: US-ELI_LILLY_AND_COMPANY-US202507000281

PATIENT
  Age: 57 Year

DRUGS (1)
  1. REZVOGLAR KWIKPEN [Suspect]
     Active Substance: INSULIN GLARGINE-AGLR
     Indication: Product used for unknown indication
     Route: 065

REACTIONS (2)
  - Accidental underdose [Unknown]
  - Product dose omission issue [Unknown]

NARRATIVE: CASE EVENT DATE: 20250630
